FAERS Safety Report 18369287 (Version 1)
Quarter: 2020Q4

REPORT INFORMATION
  Report Type: Report from Study
  Country: CA (occurrence: CA)
  Receive Date: 20201012
  Receipt Date: 20201012
  Transmission Date: 20210114
  Serious: Yes (Other)
  Sender: FDA-Public Use
  Company Number: CA-BIOGEN-2020BI00929946

PATIENT
  Age: 27 Year
  Sex: Female

DRUGS (1)
  1. TECFIDERA [Suspect]
     Active Substance: DIMETHYL FUMARATE
     Indication: MULTIPLE SCLEROSIS
     Dosage: TITRATION DOSE
     Route: 048
     Dates: start: 20200923, end: 20200926

REACTIONS (7)
  - Blindness transient [Recovered/Resolved]
  - Dizziness [Recovered/Resolved]
  - Dyspepsia [Unknown]
  - Migraine with aura [Recovered/Resolved]
  - Thirst [Unknown]
  - Dry mouth [Unknown]
  - Underdose [Unknown]

NARRATIVE: CASE EVENT DATE: 20200923
